FAERS Safety Report 5015553-2 (Version None)
Quarter: 2006Q2

REPORT INFORMATION
  Report Type: 
  Country: None (occurrence: None)
  Receive Date: 20060601
  Receipt Date: 20060524
  Transmission Date: 20061013
  Serious: Yes (Other)
  Sender: FDA-Public Use
  Company Number: US-GILEAD-2006-0009628

PATIENT
  Age: 25 Year
  Sex: Male
  Weight: 81.72 kg

DRUGS (6)
  1. BLINDED EMTRICITABINE/TENOFOVIR DF [Suspect]
     Indication: HIV INFECTION
     Route: 048
     Dates: start: 20060501, end: 20060508
  2. BLINDED ABACAVIR/LAMIVUDINE [Suspect]
     Indication: HIV INFECTION
     Route: 048
     Dates: start: 20060501, end: 20060508
  3. NORVIR [Suspect]
     Indication: HIV INFECTION
     Route: 048
     Dates: start: 20060501, end: 20060508
  4. ATAZANAVIR [Suspect]
     Indication: HIV INFECTION
     Route: 048
     Dates: start: 20060501, end: 20060508
  5. REMERON [Concomitant]
  6. KLONOPIN [Concomitant]

REACTIONS (1)
  - DRUG HYPERSENSITIVITY [None]
